FAERS Safety Report 4887419-X (Version None)
Quarter: 2006Q1

REPORT INFORMATION
  Report Type: 
  Country: None (occurrence: None)
  Receive Date: 20060123
  Receipt Date: 20060109
  Transmission Date: 20060701
  Serious: Yes (Hospitalization)
  Sender: FDA-Public Use
  Company Number: 2006CG00059

PATIENT
  Age: 56 Year
  Sex: Female
  Weight: 80 kg

DRUGS (1)
  1. XYLOCAINE [Suspect]
     Indication: FIBROMYALGIA
     Route: 042
     Dates: start: 20051206, end: 20051227

REACTIONS (5)
  - NAUSEA [None]
  - NERVOUSNESS [None]
  - TREMOR [None]
  - VISUAL DISTURBANCE [None]
  - VOMITING [None]
